FAERS Safety Report 5308415-4 (Version None)
Quarter: 2007Q2

REPORT INFORMATION
  Report Type: 
  Country: None (occurrence: None)
  Receive Date: 20070423
  Receipt Date: 20070423
  Transmission Date: 20071010
  Serious: Yes (Life-Threatening)
  Sender: FDA-Public Use
  Company Number: None

PATIENT
  Age: 47 Year
  Sex: Male
  Weight: 109.6 kg

DRUGS (2)
  1. DEXTROMETHORPHAN [Suspect]
     Indication: SUICIDE ATTEMPT
     Dates: start: 20070416, end: 20070416
  2. ALPRAZOLAM [Suspect]

REACTIONS (3)
  - ALCOHOL USE [None]
  - INTENTIONAL OVERDOSE [None]
  - SELF-MEDICATION [None]
